FAERS Safety Report 10427565 (Version 2)
Quarter: 2018Q3

REPORT INFORMATION
  Report Type: Spontaneous
  Country: US (occurrence: US)
  Receive Date: 20140903
  Receipt Date: 20180803
  Transmission Date: 20181010
  Serious: Yes (Hospitalization)
  Sender: FDA-Public Use
  Company Number: US-PFIZER INC-2014241904

PATIENT
  Age: 67 Year
  Sex: Female
  Weight: 59.32 kg

DRUGS (14)
  1. OXYGEN THERAPY [Concomitant]
     Active Substance: OXYGEN
     Dosage: 9 L, UNK
  2. CENTRUM SILVER [Concomitant]
     Active Substance: MINERALS\VITAMINS
     Dosage: UNK
  3. FLUTICASONE PROPIONATE. [Concomitant]
     Active Substance: FLUTICASONE PROPIONATE
     Dosage: UNK
     Route: 045
  4. REVATIO [Suspect]
     Active Substance: SILDENAFIL CITRATE
     Dosage: 100 MG (AS FIVE TABLETS OF 20MG), 3X/DAY
     Route: 048
  5. REVATIO [Suspect]
     Active Substance: SILDENAFIL CITRATE
     Dosage: 40 MG (AS TWO TABLETS OF 20MG), 3X/DAY
     Route: 048
  6. PRILOSEC [Concomitant]
     Active Substance: OMEPRAZOLE MAGNESIUM
     Dosage: UNK
  7. SIMVASTATIN. [Concomitant]
     Active Substance: SIMVASTATIN
     Dosage: UNK
  8. REVATIO [Suspect]
     Active Substance: SILDENAFIL CITRATE
     Indication: PULMONARY HYPERTENSION
     Dosage: 20 MG, 3X/DAY
     Route: 048
     Dates: start: 2004
  9. REVATIO [Suspect]
     Active Substance: SILDENAFIL CITRATE
     Dosage: 20 MG, 3X/DAY
     Route: 048
  10. KLOR?CON [Concomitant]
     Active Substance: POTASSIUM CHLORIDE
     Dosage: UNK
  11. FUROSEMIDE. [Concomitant]
     Active Substance: FUROSEMIDE
     Dosage: UNK
  12. ALLEGRA [Concomitant]
     Active Substance: FEXOFENADINE HYDROCHLORIDE
     Dosage: UNK
  13. SPIRONOLACTONE. [Concomitant]
     Active Substance: SPIRONOLACTONE
     Dosage: UNK
  14. ASPIRIN. [Concomitant]
     Active Substance: ASPIRIN
     Dosage: UNK

REACTIONS (3)
  - Malaise [Unknown]
  - Chest pain [Not Recovered/Not Resolved]
  - Product use issue [Unknown]

NARRATIVE: CASE EVENT DATE: 20140824
